FAERS Safety Report 8230863-3 (Version None)
Quarter: 2012Q1

REPORT INFORMATION
  Report Type: 
  Country: None (occurrence: None)
  Receive Date: 20120323
  Receipt Date: 20120313
  Transmission Date: 20120608
  Serious: Yes (Hospitalization)
  Sender: FDA-Public Use
  Company Number: DE-BRISTOL-MYERS SQUIBB COMPANY-16267163

PATIENT
  Age: 68 Year
  Sex: Female
  Weight: 50 kg

DRUGS (11)
  1. OXALIPLATIN [Concomitant]
     Indication: CHEMOTHERAPY
     Route: 042
     Dates: start: 20111201
  2. DOXEPIN HCL [Concomitant]
     Indication: SEDATION
     Route: 048
     Dates: start: 20110711, end: 20111210
  3. PANTOPRAZOLE [Concomitant]
     Route: 048
  4. IBUPROFEN [Concomitant]
     Route: 048
  5. LEUCOVORIN CALCIUM [Concomitant]
     Indication: COLORECTAL CANCER METASTATIC
     Route: 042
     Dates: start: 20111201
  6. ERBITUX [Suspect]
     Indication: COLORECTAL CANCER METASTATIC
     Dosage: 400MG/M2 17AUG11-; 250MG/M2 24AUG-07SEP11(14DAYS),09-23NOV11:350MG(14DAYS).DISCONT 28NOV12(103DYS).
     Route: 042
     Dates: start: 20110817, end: 20111123
  7. FLUOROURACIL [Concomitant]
     Indication: CHEMOTHERAPY
     Route: 042
     Dates: start: 20111201
  8. FLUOROURACIL [Concomitant]
     Indication: COLORECTAL CANCER METASTATIC
     Route: 042
     Dates: start: 20111201
  9. BISOPROLOL FUMARATE [Concomitant]
     Indication: HYPERTENSION
     Route: 048
     Dates: start: 20110901
  10. LEUCOVORIN CALCIUM [Concomitant]
     Indication: CHEMOTHERAPY
     Route: 042
     Dates: start: 20111201
  11. OXALIPLATIN [Concomitant]
     Indication: COLORECTAL CANCER METASTATIC
     Route: 042
     Dates: start: 20111201

REACTIONS (4)
  - DIARRHOEA [None]
  - ESCHERICHIA URINARY TRACT INFECTION [None]
  - VOMITING [None]
  - VERTIGO [None]
